FAERS Safety Report 4699946-9 (Version None)
Quarter: 2005Q2

REPORT INFORMATION
  Report Type: 
  Country: None (occurrence: None)
  Receive Date: 20050623
  Receipt Date: 20050609
  Transmission Date: 20051028
  Serious: Yes (Hospitalization)
  Sender: FDA-Public Use
  Company Number: FABR-11136

PATIENT
  Age: 55 Year
  Sex: Male
  Weight: 57.8 kg

DRUGS (8)
  1. FABRAZYME [Suspect]
     Indication: FABRY'S DISEASE
     Dosage: 1 MG/KG Q2WS IV
     Route: 042
     Dates: start: 20050601
  2. FABRAZYME [Suspect]
     Indication: FABRY'S DISEASE
     Dosage: 1 MG/KG Q2WKS IV
     Route: 042
     Dates: start: 20040212, end: 20050421
  3. PLACEBO [Suspect]
     Indication: FABRY'S DISEASE
     Dosage: 1 MG/KG Q2WKS IV
     Route: 042
     Dates: start: 20020326, end: 20040129
  4. LORAZEPAM [Concomitant]
  5. ALBUTEROL [Concomitant]
  6. CARDIZEM CD [Concomitant]
  7. COUMADIN [Concomitant]
  8. TYLENOL [Concomitant]

REACTIONS (6)
  - DECREASED APPETITE [None]
  - INSOMNIA [None]
  - MASS [None]
  - PAIN [None]
  - PNEUMONIA [None]
  - WEIGHT DECREASED [None]
